FAERS Safety Report 8695132 (Version 2)
Quarter: 2013Q4

REPORT INFORMATION
  Report Type: Spontaneous
  Country: US (occurrence: US)
  Receive Date: 20120731
  Receipt Date: 20131106
  Transmission Date: 20140711
  Serious: Yes (Hospitalization)
  Sender: FDA-Public Use
  Company Number: US-009507513-1207USA010548

PATIENT
  Sex: Female

DRUGS (7)
  1. ZOCOR [Suspect]
     Dosage: 40 MG, QD
     Route: 048
  2. GLIVEC [Interacting]
     Dosage: 200 MG, QD
     Route: 048
  3. NEXIUM [Concomitant]
  4. HJERTEMAGNYL [Concomitant]
     Dosage: 75 MG, QD
     Route: 048
  5. TRIATEC (RAMIPRIL) [Concomitant]
     Dosage: 5 MG, QD
     Route: 048
  6. STILNOCT [Concomitant]
     Dosage: 10 MG, PRN
     Route: 048
  7. CENTYL [Concomitant]
     Dosage: 5 MG, QD
     Route: 048

REACTIONS (11)
  - Muscle enzyme increased [Unknown]
  - Cardiotoxicity [Unknown]
  - Myoglobin blood increased [Unknown]
  - Gait disturbance [Unknown]
  - Hepatic enzyme abnormal [Unknown]
  - Rhabdomyolysis [Unknown]
  - Alanine aminotransferase increased [Unknown]
  - Muscular weakness [Unknown]
  - Myositis [Unknown]
  - Blood creatine phosphokinase increased [Unknown]
  - Drug interaction [Unknown]
